FAERS Safety Report 7941370-7 (Version None)
Quarter: 2011Q4

REPORT INFORMATION
  Report Type: 
  Country: None (occurrence: None)
  Receive Date: 20111122
  Receipt Date: 20111122
  Transmission Date: 20120403
  Serious: Yes (Other)
  Sender: FDA-Public Use
  Company Number: None

PATIENT
  Sex: Female
  Weight: 99.7913 kg

DRUGS (2)
  1. ABILIFY [Suspect]
     Indication: MENTAL DISORDER
     Dosage: 1 DAILY
  2. ZETIA [Suspect]
     Indication: BLOOD CHOLESTEROL INCREASED

REACTIONS (4)
  - JOINT STIFFNESS [None]
  - HEADACHE [None]
  - OEDEMA PERIPHERAL [None]
  - ARTHRALGIA [None]
